FAERS Safety Report 11186141 (Version 1)
Quarter: 2015Q2

REPORT INFORMATION
  Report Type: Report from Study
  Country: FR (occurrence: FR)
  Receive Date: 20150612
  Receipt Date: 20150612
  Transmission Date: 20150821
  Serious: Yes (Hospitalization)
  Sender: FDA-Public Use
  Company Number: FR-AMGEN-KDC408232

PATIENT
  Age: 57 Year
  Sex: Male

DRUGS (23)
  1. BELLADONNA EXTRACT/CAFFEINE/OPIUM [Concomitant]
     Dosage: UNK UNK, TID
     Route: 048
     Dates: start: 20100319, end: 20100327
  2. MORPHINE SULFATE. [Concomitant]
     Active Substance: MORPHINE SULFATE
     Dosage: 20 MG, Q6H
     Route: 048
     Dates: start: 20100327, end: 20100421
  3. BETAMETHASONE DIPROPIONATE. [Concomitant]
     Active Substance: BETAMETHASONE DIPROPIONATE
     Dosage: UNK UNK, BID
     Route: 061
     Dates: start: 20100331, end: 20100405
  4. GRANISETRON HCL [Concomitant]
     Dosage: 3 MG, UNK
     Route: 042
     Dates: start: 20100309, end: 20100309
  5. BEVACIZUMAB [Concomitant]
     Active Substance: BEVACIZUMAB
     Dosage: 5 MG/M2, Q2WK
     Route: 042
     Dates: start: 20100309, end: 20100326
  6. OGAST [Concomitant]
     Active Substance: LANSOPRAZOLE
     Dosage: UNK UNK, QD
     Route: 048
     Dates: start: 20100307, end: 20100421
  7. METOPIMAZINE [Concomitant]
     Active Substance: METOPIMAZINE
     Dosage: UNK UNK, BID
     Route: 042
     Dates: start: 20100319, end: 20100323
  8. BIAFINE [Concomitant]
     Active Substance: TROLAMINE
     Dosage: UNK UNK, PRN
     Route: 061
     Dates: start: 20100324, end: 20100421
  9. GLYCEROL + PARAFFIN + LIQUID + WHITE SOFT PARAFFIN [Concomitant]
     Dosage: UNK UNK, PRN
     Route: 061
     Dates: start: 20100324, end: 20100421
  10. IRINOTECAN [Concomitant]
     Active Substance: IRINOTECAN
     Dosage: 180 MG/M2, Q2WK
     Route: 042
     Dates: start: 20100309, end: 20100326
  11. DOMPERIDONE [Concomitant]
     Active Substance: DOMPERIDONE
     Dosage: 20 MG, TID
     Route: 048
     Dates: start: 20100329, end: 20100404
  12. GRANISETRON HCL [Concomitant]
     Dosage: 3 MG, UNK
     Route: 042
     Dates: start: 20100326, end: 20100326
  13. METHYLPREDNISOLONE SODIUM SUCCINATE. [Concomitant]
     Active Substance: METHYLPREDNISOLONE SODIUM SUCCINATE
     Dosage: 80 MG, UNK
     Route: 042
     Dates: start: 20100326, end: 20100326
  14. METHYLPREDNISOLONE SODIUM SUCCINATE. [Concomitant]
     Active Substance: METHYLPREDNISOLONE SODIUM SUCCINATE
     Dosage: 80 MG, UNK
     Route: 042
     Dates: start: 20100416, end: 20100416
  15. MORPHINE SULFATE. [Concomitant]
     Active Substance: MORPHINE SULFATE
     Dosage: 50 MG, BID
     Route: 048
     Dates: start: 20100327, end: 20100421
  16. METHYLPREDNISOLONE SODIUM SUCCINATE. [Concomitant]
     Active Substance: METHYLPREDNISOLONE SODIUM SUCCINATE
     Dosage: 80 MG, UNK
     Route: 042
     Dates: start: 20100309, end: 20100309
  17. AMINO ACIDS [Concomitant]
     Active Substance: AMINO ACIDS
     Dosage: UNK UNK, PRN
     Route: 042
     Dates: start: 20100318, end: 20100407
  18. LIDOCAINE HYDROCHLORIDE. [Concomitant]
     Active Substance: LIDOCAINE HYDROCHLORIDE
     Dosage: UNK UNK, PRN
     Route: 048
     Dates: start: 20100331, end: 20100421
  19. SKIN OINTMENT NOS [Concomitant]
     Dosage: UNK UNK, UNK
     Route: 061
  20. PEGFILGRASTIM [Suspect]
     Active Substance: PEGFILGRASTIM
     Indication: CHEMOTHERAPY
     Dosage: UNK UNK, Q2WK
     Route: 058
     Dates: start: 20100312, end: 20100329
  21. FLUOROURACIL. [Concomitant]
     Active Substance: FLUOROURACIL
     Dosage: UNK UNK, Q2WK
     Route: 042
     Dates: start: 20100309, end: 20100328
  22. FOLINIC ACID [Concomitant]
     Active Substance: LEUCOVORIN
     Dosage: 200 MG/M2, Q2WK
     Route: 042
     Dates: start: 20100309, end: 20100326
  23. GRANISETRON HCL [Concomitant]
     Dosage: 3 MG, UNK
     Route: 042
     Dates: start: 20100416, end: 20100416

REACTIONS (1)
  - Spinal pain [Recovered/Resolved]

NARRATIVE: CASE EVENT DATE: 20100402
